FAERS Safety Report 19421377 (Version 3)
Quarter: 2021Q4

REPORT INFORMATION
  Report Type: Report from Study
  Country: US (occurrence: US)
  Receive Date: 20210615
  Receipt Date: 20211110
  Transmission Date: 20220303
  Serious: Yes (Other)
  Sender: FDA-Public Use
  Company Number: US-SEATTLE GENETICS-2021SGN01666

PATIENT
  Age: 51 Year
  Sex: Female

DRUGS (4)
  1. TUCATINIB [Suspect]
     Active Substance: TUCATINIB
     Indication: Breast cancer female
     Dosage: UNK
  2. TUCATINIB [Suspect]
     Active Substance: TUCATINIB
     Dosage: UNK
  3. TUCATINIB [Suspect]
     Active Substance: TUCATINIB
     Dosage: UNK
  4. HERCEPTIN [Suspect]
     Active Substance: TRASTUZUMAB
     Indication: Product used for unknown indication
     Dosage: UNK, Q3WEEKS

REACTIONS (15)
  - Metastases to central nervous system [Unknown]
  - Nail disorder [Unknown]
  - Laboratory test abnormal [Unknown]
  - Blood creatinine increased [Unknown]
  - Neoplasm progression [Unknown]
  - Magnetic resonance imaging head abnormal [Unknown]
  - Alopecia [Recovered/Resolved]
  - Alopecia [Unknown]
  - Memory impairment [Unknown]
  - Product dose omission issue [Unknown]
  - Skin exfoliation [Unknown]
  - Fatigue [Unknown]
  - Rash [Unknown]
  - Rash pruritic [Unknown]
  - Nausea [Unknown]

NARRATIVE: CASE EVENT DATE: 20211001
